FAERS Safety Report 18182762 (Version 1)
Quarter: 2020Q3

REPORT INFORMATION
  Report Type: Report from Study
  Country: JP (occurrence: JP)
  Receive Date: 20200821
  Receipt Date: 20200821
  Transmission Date: 20201103
  Serious: Yes (Death)
  Sender: FDA-Public Use
  Company Number: JP-COVIS PHARMA B.V.-2013P1015829

PATIENT
  Age: 69 Year
  Sex: Female

DRUGS (5)
  1. RILUZOLE. [Suspect]
     Active Substance: RILUZOLE
     Indication: AMYOTROPHIC LATERAL SCLEROSIS
     Route: 048
     Dates: start: 19990709, end: 19990811
  2. TOCOPHERYL NICOTINATE [Concomitant]
     Active Substance: TOCOPHERYL NICOTINATE, D-.ALPHA.
     Route: 048
     Dates: start: 19981120, end: 19990722
  3. SENNA ALEXANDRINA [Concomitant]
     Active Substance: SENNA LEAF
     Route: 048
     Dates: start: 19990528, end: 19990811
  4. MECOBALAMIN [Concomitant]
     Active Substance: METHYLCOBALAMIN
     Route: 048
     Dates: start: 19980824, end: 19990722
  5. FURSULTIAMINE [Concomitant]
     Active Substance: FURSULTIAMINE
     Route: 048
     Dates: start: 19990806, end: 19990811

REACTIONS (2)
  - Pancreatitis acute [Fatal]
  - Nausea [Fatal]

NARRATIVE: CASE EVENT DATE: 19990811
